FAERS Safety Report 21978713 (Version 2)
Quarter: 2023Q1

REPORT INFORMATION
  Report Type: Spontaneous
  Country: CN (occurrence: CN)
  Receive Date: 20230210
  Receipt Date: 20230303
  Transmission Date: 20230418
  Serious: Yes (Hospitalization, Other)
  Sender: FDA-Public Use
  Company Number: CN-SANOFI-01480036

PATIENT
  Age: 78 Year

DRUGS (2)
  1. LANTUS SOLOSTAR [Suspect]
     Active Substance: INSULIN GLARGINE
     Indication: Diabetes mellitus
     Dosage: 12 IU QD
     Dates: start: 2008
  2. GLUCOBAY [Concomitant]
     Active Substance: ACARBOSE
     Dosage: 1 TABLET IN THE MORNING , 2 TABLET S OF GLUCOBAY AT NOON AND 1.5 TABLETS OF GLUCOBAY IN THE EVENING
     Route: 048

REACTIONS (6)
  - COVID-19 pneumonia [Recovered/Resolved with Sequelae]
  - Pyrexia [Unknown]
  - Myocardial infarction [Recovered/Resolved]
  - Endocrine disorder [Unknown]
  - Asthenia [Unknown]
  - Blood glucose increased [Unknown]

NARRATIVE: CASE EVENT DATE: 20170101
